FAERS Safety Report 19103442 (Version 1)
Quarter: 2021Q2

REPORT INFORMATION
  Report Type: Spontaneous
  Country: US (occurrence: US)
  Receive Date: 20210407
  Receipt Date: 20210407
  Transmission Date: 20210717
  Serious: Yes (Other)
  Sender: FDA-Public Use
  Company Number: US-SA-2021SA111335

PATIENT
  Age: 63 Year
  Sex: Female

DRUGS (4)
  1. ZANTAC [Suspect]
     Active Substance: RANITIDINE HYDROCHLORIDE
     Indication: GASTRIC ULCER
     Dosage: 150 MG, QD
  2. ZANTAC [Suspect]
     Active Substance: RANITIDINE HYDROCHLORIDE
     Indication: GASTROOESOPHAGEAL REFLUX DISEASE
     Dosage: 75 MG, QD
  3. ZANTAC [Suspect]
     Active Substance: RANITIDINE HYDROCHLORIDE
     Indication: SMALL INTESTINE ULCER
  4. ZANTAC [Suspect]
     Active Substance: RANITIDINE HYDROCHLORIDE
     Indication: ABDOMINAL DISCOMFORT

REACTIONS (3)
  - Hepatic cancer [Unknown]
  - Colorectal cancer [Unknown]
  - Brain neoplasm malignant [Unknown]

NARRATIVE: CASE EVENT DATE: 20130123
